FAERS Safety Report 18258496 (Version 1)
Quarter: 2020Q3

REPORT INFORMATION
  Report Type: Spontaneous
  Country: US (occurrence: US)
  Receive Date: 20200911
  Receipt Date: 20200911
  Transmission Date: 20201103
  Serious: Yes (Other)
  Sender: FDA-Public Use
  Company Number: US-PFIZER INC-2020344608

PATIENT
  Age: 59 Year
  Sex: Female
  Weight: 18.14 kg

DRUGS (1)
  1. PREMARIN [Suspect]
     Active Substance: ESTROGENS, CONJUGATED
     Dosage: UNK, DAILY (SHE USES IT EVERY DAY)
     Route: 067

REACTIONS (5)
  - Pain [Unknown]
  - Crying [Unknown]
  - Product complaint [Unknown]
  - Vaginal haemorrhage [Unknown]
  - Off label use [Unknown]
